FAERS Safety Report 21452709 (Version 1)
Quarter: 2022Q4

REPORT INFORMATION
  Report Type: Spontaneous
  Country: CN (occurrence: None)
  Receive Date: 20221013
  Receipt Date: 20221013
  Transmission Date: 20230113
  Serious: Yes (Other)
  Sender: FDA-Public Use
  Company Number: CN-ROCHE-3197182

PATIENT
  Age: 52 Year
  Sex: Female
  Weight: 66.6 kg

DRUGS (4)
  1. CAPECITABINE [Suspect]
     Active Substance: CAPECITABINE
     Indication: Breast cancer
     Dosage: ON 10/SEP/2022, PATIENT STARTED 4TH CYCLE OF  CAPECITABINE UP TO 23/SEP/2022  (DAY 1 TO 14)
     Route: 048
  2. HERCEPTIN [Suspect]
     Active Substance: TRASTUZUMAB
     Indication: Breast cancer
     Dosage: ON 10/SEP/2022, 4TH CYCLE RECEIVED
     Route: 041
  3. HERCEPTIN [Suspect]
     Active Substance: TRASTUZUMAB
     Route: 041
  4. VINORELBINE TARTRATE [Suspect]
     Active Substance: VINORELBINE TARTRATE
     Indication: Breast cancer
     Dosage: ON 10/SEP/2022, PATIENT RECEIVED THE 4 THE CYCLE DOSE
     Route: 041

REACTIONS (1)
  - Myelosuppression [Recovered/Resolved]

NARRATIVE: CASE EVENT DATE: 20220824
